FAERS Safety Report 18477824 (Version 1)
Quarter: 2020Q4

REPORT INFORMATION
  Report Type: Spontaneous
  Country: US (occurrence: US)
  Receive Date: 20201108
  Receipt Date: 20201108
  Transmission Date: 20210114
  Serious: No
  Sender: FDA-Public Use
  Company Number: US-ASTRAZENECA-2020SF36352

PATIENT
  Age: 38 Year
  Sex: Female

DRUGS (2)
  1. BREZTRI AEROSPHERE [Suspect]
     Active Substance: BUDESONIDE\FORMOTEROL\GLYCOPYRRONIUM
     Indication: CHRONIC OBSTRUCTIVE PULMONARY DISEASE
     Dosage: 160/9/4.8MCG, 2 PUFFS, TWICE DAILY
     Route: 055
     Dates: start: 20201008, end: 20201010
  2. BREZTRI AEROSPHERE [Suspect]
     Active Substance: BUDESONIDE\FORMOTEROL\GLYCOPYRRONIUM
     Indication: CHRONIC OBSTRUCTIVE PULMONARY DISEASE
     Dosage: 160/9/4.8MCG, 2 PUFFS, TWICE DAILY
     Route: 055
     Dates: start: 20201012

REACTIONS (3)
  - Fatigue [Unknown]
  - Stress [Unknown]
  - Herpes zoster [Unknown]

NARRATIVE: CASE EVENT DATE: 20201009
